FAERS Safety Report 9386033 (Version 2)
Quarter: 2013Q3

REPORT INFORMATION
  Report Type: Report from Study
  Country: JP (occurrence: JP)
  Receive Date: 20130705
  Receipt Date: 20130718
  Transmission Date: 20140515
  Serious: Yes (Other)
  Sender: FDA-Public Use
  Company Number: JP-009507513-1306JPN003659

PATIENT
  Age: 66 Year
  Sex: Male

DRUGS (7)
  1. FOSAPREPITANT DIMEGLUMINE [Suspect]
     Indication: PROPHYLAXIS OF NAUSEA AND VOMITING
     Dosage: 150 MG, ONCE
     Route: 041
     Dates: start: 20121228, end: 20121228
  2. FOSAPREPITANT DIMEGLUMINE [Suspect]
     Dosage: 150 MG, ONCE
     Route: 041
     Dates: start: 20130123, end: 20130123
  3. FOSAPREPITANT DIMEGLUMINE [Suspect]
     Dosage: 150 MG, ONCE
     Route: 041
     Dates: start: 20130220, end: 20130220
  4. FOSAPREPITANT DIMEGLUMINE [Suspect]
     Dosage: 150 MG, ONCE
     Route: 041
     Dates: start: 20130320, end: 20130320
  5. RANDA [Concomitant]
     Dosage: UNK
     Dates: start: 20121228, end: 20121228
  6. DEXART [Concomitant]
     Dosage: 3.30 MG, UNK
     Route: 065
     Dates: start: 20121228, end: 20121228
  7. DEXART [Concomitant]
     Dosage: 1.65 MG, UNK
     Dates: start: 20121229, end: 20121231

REACTIONS (1)
  - Gastric ulcer haemorrhage [Recovered/Resolved]
